FAERS Safety Report 6307295-8 (Version None)
Quarter: 2009Q3

REPORT INFORMATION
  Report Type: 
  Country: None (occurrence: None)
  Receive Date: 20090813
  Receipt Date: 20090804
  Transmission Date: 20100115
  Serious: Yes (Other)
  Sender: FDA-Public Use
  Company Number: ES-PFIZER INC-2009250497

PATIENT
  Age: 46 Year

DRUGS (1)
  1. AMLODIPINE BESILATE, ATORVASTATIN CALCIUM [Suspect]
     Dosage: 10/10MG
     Dates: start: 20090101

REACTIONS (2)
  - PHARYNGEAL OEDEMA [None]
  - SWELLING FACE [None]
